FAERS Safety Report 12451785 (Version 3)
Quarter: 2016Q3

REPORT INFORMATION
  Report Type: Spontaneous
  Country: DE (occurrence: DE)
  Receive Date: 20160609
  Receipt Date: 20160808
  Transmission Date: 20161109
  Serious: Yes (Life-Threatening, Hospitalization, Other)
  Sender: FDA-Public Use
  Company Number: PHHY2016DE079327

PATIENT
  Sex: Female

DRUGS (1)
  1. TASIGNA [Suspect]
     Active Substance: NILOTINIB
     Indication: CHRONIC MYELOID LEUKAEMIA
     Dosage: 600 MG, QD (PER DAY)
     Route: 048
     Dates: start: 201204, end: 201603

REACTIONS (19)
  - Coma scale [Recovering/Resolving]
  - Nausea [Unknown]
  - Activated partial thromboplastin time shortened [Unknown]
  - Cyanosis [Recovering/Resolving]
  - Angina pectoris [Unknown]
  - Gamma-glutamyltransferase increased [Unknown]
  - Coronary artery disease [Recovering/Resolving]
  - Posture abnormal [Unknown]
  - Unresponsive to stimuli [Unknown]
  - Atrioventricular block complete [Recovered/Resolved]
  - Acute myocardial infarction [Recovering/Resolving]
  - Syncope [Recovering/Resolving]
  - Atelectasis [Unknown]
  - Aspiration [Unknown]
  - Glomerular filtration rate decreased [Unknown]
  - Blood glucose increased [Unknown]
  - Activated partial thromboplastin time prolonged [Unknown]
  - Blood lactate dehydrogenase increased [Unknown]
  - Nasopharyngitis [Unknown]

NARRATIVE: CASE EVENT DATE: 201603
